FAERS Safety Report 10515580 (Version 1)
Quarter: 2014Q4

REPORT INFORMATION
  Report Type: Spontaneous
  Country: US (occurrence: None)
  Receive Date: 20141009
  Receipt Date: 20141009
  Transmission Date: 20150528
  Serious: Yes (Other)
  Sender: FDA-Public Use
  Company Number: 2014EDG00014

PATIENT
  Age: 8 Year
  Sex: Male
  Weight: 28.5 kg

DRUGS (2)
  1. FLUOXETINE (FLUOXETINE) UNKNOWN [Suspect]
     Active Substance: FLUOXETINE HYDROCHLORIDE
     Indication: DEPRESSION
  2. METHYLPHENIDATE (METHYLPHENIDATE) UNKNOWN [Suspect]
     Active Substance: METHYLPHENIDATE
     Indication: ATTENTION DEFICIT/HYPERACTIVITY DISORDER

REACTIONS (3)
  - Drug interaction [None]
  - Hallucination, tactile [None]
  - Aggression [None]
